FAERS Safety Report 5445007-0 (Version None)
Quarter: 2007Q3

REPORT INFORMATION
  Report Type: 
  Country: None (occurrence: None)
  Receive Date: 20070906
  Receipt Date: 20070829
  Transmission Date: 20080115
  Serious: Yes (Hospitalization, Congenital Anomaly, Other)
  Sender: FDA-Public Use
  Company Number: US-ROCHE-391991

PATIENT

DRUGS (2)
  1. ACCUTANE [Suspect]
     Dates: start: 19940914
  2. ACCUTANE [Suspect]
     Dates: start: 20010101, end: 20010427

REACTIONS (12)
  - ANAEMIA [None]
  - CONGENITAL ANOMALY [None]
  - DEPRESSION [None]
  - DIABETES MELLITUS [None]
  - DRUG EXPOSURE DURING PREGNANCY [None]
  - GASTROINTESTINAL PAIN [None]
  - GASTROOESOPHAGEAL REFLUX DISEASE [None]
  - HYPERTRIGLYCERIDAEMIA [None]
  - PANCREATITIS ACUTE [None]
  - PREGNANCY [None]
  - PREMATURE RUPTURE OF MEMBRANES [None]
  - STILLBIRTH [None]
